FAERS Safety Report 4955314-3 (Version None)
Quarter: 2006Q1

REPORT INFORMATION
  Report Type: 
  Country: None (occurrence: None)
  Receive Date: 20060322
  Receipt Date: 20060313
  Transmission Date: 20060701
  Serious: No
  Sender: FDA-Public Use
  Company Number: APP200600081

PATIENT
  Age: 67 Year
  Sex: Male

DRUGS (1)
  1. PAMIDRONATE DISODIUM [Suspect]
     Indication: MULTIPLE MYELOMA
     Dosage: 3MG (09 MG, 1 IN 1 M) INJECTION
     Dates: start: 20020901, end: 20050717

REACTIONS (3)
  - EXOSTOSIS [None]
  - TOOTH DISORDER [None]
  - TOOTH EXTRACTION [None]
